FAERS Safety Report 9605523 (Version 4)
Quarter: 2014Q2

REPORT INFORMATION
  Report Type: Report from Study
  Country: CA (occurrence: CA)
  Receive Date: 20131008
  Receipt Date: 20140418
  Transmission Date: 20141212
  Serious: Yes (Hospitalization, Other)
  Sender: FDA-Public Use
  Company Number: CA-UCBSA-099841

PATIENT
  Age: 24 Year
  Sex: Male
  Weight: 73.48 kg

DRUGS (13)
  1. CIMZIA [Suspect]
     Indication: ANKYLOSING SPONDYLITIS
     Route: 058
     Dates: start: 20130926
  2. CIMZIA [Suspect]
     Indication: CROHN^S DISEASE
     Route: 058
     Dates: start: 20130926
  3. CIMZIA [Suspect]
     Indication: ANKYLOSING SPONDYLITIS
     Route: 058
     Dates: start: 20130515, end: 20130804
  4. CIMZIA [Suspect]
     Indication: CROHN^S DISEASE
     Route: 058
     Dates: start: 20130515, end: 20130804
  5. CIMZIA [Suspect]
     Indication: ANKYLOSING SPONDYLITIS
     Route: 058
     Dates: start: 20130322, end: 20130418
  6. CIMZIA [Suspect]
     Indication: CROHN^S DISEASE
     Route: 058
     Dates: start: 20130322, end: 20130418
  7. METHOTREXATE [Concomitant]
     Indication: CROHN^S DISEASE
     Route: 048
     Dates: start: 2012
  8. METHOTREXATE [Concomitant]
     Indication: ANKYLOSING SPONDYLITIS
     Route: 048
     Dates: start: 2012
  9. CALCIUM [Concomitant]
     Route: 048
     Dates: start: 2012
  10. VIT D [Concomitant]
     Indication: OSTEOPOROSIS
     Dosage: DOSE: 10,000 U.I
     Route: 048
     Dates: start: 2012
  11. AMOXICLAV [Concomitant]
     Indication: SUBCUTANEOUS ABSCESS
     Dosage: DOSE: 875-125 MG, FOR 7 DAYS
     Route: 048
     Dates: start: 20130908, end: 20130915
  12. PREDNISONE [Concomitant]
     Indication: INFLAMMATION
     Route: 048
     Dates: start: 20131006
  13. PREDNISONE [Concomitant]
     Indication: INFLAMMATION
     Dosage: UNKNOWN DOSE
     Dates: end: 20131006

REACTIONS (7)
  - Abdominal abscess [Not Recovered/Not Resolved]
  - Diarrhoea [Recovered/Resolved]
  - Ankylosing spondylitis [Not Recovered/Not Resolved]
  - Asthenia [Recovered/Resolved]
  - Dehydration [Recovered/Resolved]
  - Clostridium difficile infection [Not Recovered/Not Resolved]
  - Drug ineffective [Recovered/Resolved]
